FAERS Safety Report 5632599-1 (Version None)
Quarter: 2008Q1

REPORT INFORMATION
  Report Type: 
  Country: None (occurrence: None)
  Receive Date: 20080219
  Receipt Date: 20080204
  Transmission Date: 20080703
  Serious: Yes (Death)
  Sender: FDA-Public Use
  Company Number: 023827

PATIENT
  Age: 73 Year

DRUGS (3)
  1. METFORMIN HYDROCHLORIDE [Suspect]
     Dosage: ORAL
     Route: 048
  2. VERAPAMIL HCL [Suspect]
     Dosage: ORAL
     Route: 048
  3. DIGOXIN [Suspect]
     Dosage: ORAL
     Route: 048

REACTIONS (2)
  - DRUG TOXICITY [None]
  - MEDICATION ERROR [None]
